FAERS Safety Report 12587681 (Version 1)
Quarter: 2016Q3

REPORT INFORMATION
  Report Type: Report from Study
  Country: US (occurrence: US)
  Receive Date: 20160725
  Receipt Date: 20160725
  Transmission Date: 20161109
  Serious: Yes (Hospitalization, Other)
  Sender: FDA-Public Use
  Company Number: US-ABBVIE-16K-163-1661420-00

PATIENT
  Age: 13 Year
  Sex: Male

DRUGS (2)
  1. HUMIRA [Suspect]
     Active Substance: ADALIMUMAB
     Route: 058
     Dates: start: 201511
  2. HUMIRA [Suspect]
     Active Substance: ADALIMUMAB
     Indication: CROHN^S DISEASE
     Route: 058
     Dates: start: 201102, end: 201311

REACTIONS (7)
  - Crohn^s disease [Recovered/Resolved]
  - Fistula [Recovered/Resolved]
  - Abdominal pain [Recovering/Resolving]
  - Crohn^s disease [Recovered/Resolved]
  - Crohn^s disease [Recovered/Resolved]
  - Crohn^s disease [Recovered/Resolved]
  - Treatment noncompliance [Unknown]

NARRATIVE: CASE EVENT DATE: 201311
